FAERS Safety Report 15552541 (Version 3)
Quarter: 2018Q4

REPORT INFORMATION
  Report Type: Report from Study
  Country: DE (occurrence: DE)
  Receive Date: 20181025
  Receipt Date: 20181130
  Transmission Date: 20190205
  Serious: Yes (Hospitalization)
  Sender: FDA-Public Use
  Company Number: DE-BAUSCH-BL-2018-029601

PATIENT
  Age: 37 Year
  Sex: Female
  Weight: 91.5 kg

DRUGS (1)
  1. BRODALUMAB [Suspect]
     Active Substance: BRODALUMAB
     Indication: PSORIASIS
     Route: 058
     Dates: start: 20180606

REACTIONS (1)
  - Reactive gastropathy [Recovered/Resolved]

NARRATIVE: CASE EVENT DATE: 20181016
